FAERS Safety Report 6395701-2 (Version None)
Quarter: 2009Q4

REPORT INFORMATION
  Report Type: 
  Country: None (occurrence: None)
  Receive Date: 20091009
  Receipt Date: 20090929
  Transmission Date: 20100525
  Serious: Yes (Other)
  Sender: FDA-Public Use
  Company Number: CA-JNJFOC-20091000220

PATIENT
  Age: 11 Year
  Sex: Female

DRUGS (2)
  1. REMICADE [Suspect]
     Indication: INFLAMMATORY BOWEL DISEASE
     Route: 042
  2. AZATHIOPRINE [Concomitant]

REACTIONS (1)
  - HEPATIC ENZYME INCREASED [None]
